FAERS Safety Report 6060092-3 (Version None)
Quarter: 2009Q1

REPORT INFORMATION
  Report Type: 
  Country: None (occurrence: None)
  Receive Date: 20090127
  Receipt Date: 20090115
  Transmission Date: 20090719
  Serious: Yes (Hospitalization, Other)
  Sender: FDA-Public Use
  Company Number: 2009-189670-NL

PATIENT
  Age: 71 Year
  Sex: Male

DRUGS (6)
  1. DANAPARAOID SODIUM [Suspect]
     Dosage: DF
     Dates: start: 20081118, end: 20081204
  2. FLUINDIONE [Concomitant]
  3. SIMVASTATIN [Concomitant]
  4. DIGOXIN [Concomitant]
  5. EPINEPHRINE [Concomitant]
  6. ENOXAPARIN SODIUM [Concomitant]

REACTIONS (7)
  - ANAEMIA [None]
  - GAIT DISTURBANCE [None]
  - HAEMATOMA [None]
  - INDURATION [None]
  - LOCAL SWELLING [None]
  - THROMBOSIS [None]
  - VASCULAR PSEUDOANEURYSM [None]
